FAERS Safety Report 9577768 (Version 1)
Quarter: 2013Q4

REPORT INFORMATION
  Report Type: Spontaneous
  Country: US (occurrence: US)
  Receive Date: 20131001
  Receipt Date: 20131001
  Transmission Date: 20140711
  Serious: No
  Sender: FDA-Public Use
  Company Number: US-AMGEN-USASP2013009781

PATIENT
  Age: 57 Year
  Sex: Female

DRUGS (1)
  1. ENBREL [Suspect]
     Indication: ANKYLOSING SPONDYLITIS
     Dosage: 50 MG, QWK
     Route: 058
     Dates: start: 201212

REACTIONS (5)
  - Eyelid oedema [Unknown]
  - Erythema of eyelid [Unknown]
  - Injection site rash [Unknown]
  - Injection site swelling [Unknown]
  - Injection site urticaria [Unknown]
